FAERS Safety Report 9681562 (Version 4)
Quarter: 2015Q2

REPORT INFORMATION
  Report Type: Spontaneous
  Country: CA (occurrence: CA)
  Receive Date: 20131111
  Receipt Date: 20150519
  Transmission Date: 20150821
  Serious: Yes (Other)
  Sender: FDA-Public Use
  Company Number: CA-AMGEN-CANSP2013079090

PATIENT
  Age: 70 Year
  Sex: Female
  Weight: 72.56 kg

DRUGS (6)
  1. GOLD [Concomitant]
     Active Substance: GOLD
     Dosage: UNK
  2. PLAQUENIL [Concomitant]
     Active Substance: HYDROXYCHLOROQUINE SULFATE
     Dosage: UNK
  3. NAPROXEN. [Concomitant]
     Active Substance: NAPROXEN
     Dosage: UNK
  4. LYRICA [Concomitant]
     Active Substance: PREGABALIN
     Dosage: UNK
  5. ENBREL [Suspect]
     Active Substance: ETANERCEPT
     Indication: RHEUMATOID ARTHRITIS
     Dosage: UNK
     Route: 065
  6. PREDNISONE. [Concomitant]
     Active Substance: PREDNISONE
     Dosage: 5 MG, UNK

REACTIONS (13)
  - Fatigue [Unknown]
  - Red blood cell sedimentation rate abnormal [Unknown]
  - Dental caries [Unknown]
  - Increased appetite [Unknown]
  - Spinal fusion surgery [Recovered/Resolved]
  - Intervertebral disc protrusion [Recovered/Resolved]
  - Cataract [Recovered/Resolved]
  - Productive cough [Unknown]
  - Nasopharyngitis [Unknown]
  - Sputum discoloured [Unknown]
  - Arthralgia [Unknown]
  - Weight increased [Unknown]
  - Weight decreased [Unknown]

NARRATIVE: CASE EVENT DATE: 201306
